FAERS Safety Report 5773440-6 (Version None)
Quarter: 2008Q2

REPORT INFORMATION
  Report Type: 
  Country: None (occurrence: None)
  Receive Date: 20080616
  Receipt Date: 20080609
  Transmission Date: 20081010
  Serious: Yes (Hospitalization)
  Sender: FDA-Public Use
  Company Number: JP-AVENTIS-200811749JP

PATIENT
  Age: 45 Year
  Sex: Female
  Weight: 74.3 kg

DRUGS (6)
  1. LASIX [Suspect]
  2. ALDACTONE [Concomitant]
  3. NU-LOTAN [Concomitant]
  4. CARVEDILOL [Concomitant]
  5. AMIODARONE HCL [Concomitant]
  6. TOLVAPTAN [Concomitant]

REACTIONS (1)
  - INTRACARDIAC THROMBUS [None]
